FAERS Safety Report 7040379-8 (Version None)
Quarter: 2010Q4

REPORT INFORMATION
  Report Type: 
  Country: None (occurrence: None)
  Receive Date: 20101008
  Receipt Date: 20101008
  Transmission Date: 20110411
  Serious: Yes (Hospitalization)
  Sender: FDA-Public Use
  Company Number: None

PATIENT
  Age: 71 Year

DRUGS (6)
  1. VORINOSTAT 400MG PO QD [Suspect]
     Indication: BLADDER CANCER
     Dosage: 400MG PO QD
     Route: 048
     Dates: start: 20100917
  2. HYDROXYCHLORAQUIN 600MG PO. QD [Suspect]
     Dosage: 600MG PO QD
     Route: 048
     Dates: start: 20100917
  3. ZOFRAN [Concomitant]
  4. METOCLORPRAMIDE [Concomitant]
  5. ACETOMINOPHEN/HYDROCODONE [Concomitant]
  6. ENALAPRIL MALEATE [Concomitant]

REACTIONS (6)
  - ABDOMINAL PAIN [None]
  - ASCITES [None]
  - DISEASE RECURRENCE [None]
  - HAEMOGLOBIN DECREASED [None]
  - OEDEMA PERIPHERAL [None]
  - URINARY TRACT INFECTION [None]
